FAERS Safety Report 4955275-7 (Version None)
Quarter: 2006Q1

REPORT INFORMATION
  Report Type: 
  Country: None (occurrence: None)
  Receive Date: 20060322
  Receipt Date: 20060310
  Transmission Date: 20060701
  Serious: Yes (Other)
  Sender: FDA-Public Use
  Company Number: 2006-BP-02773RO

PATIENT
  Age: 13 Year
  Sex: Female

DRUGS (10)
  1. METHOTREXATE [Suspect]
     Indication: ACUTE LYMPHOCYTIC LEUKAEMIA
     Dosage: IT
     Route: 038
  2. VINCRISTINE [Concomitant]
  3. PREDNISONE [Concomitant]
  4. DAUNORUBICIN HCL [Concomitant]
  5. CYTARABINE [Concomitant]
  6. L-ASPARAGINASE (ASPARAGINASE) [Concomitant]
  7. MERCAPTOPURINE [Concomitant]
  8. CYCLOPHOSPHAMIDE [Concomitant]
  9. HYDROCORTISONE [Concomitant]
  10. CYTARABINE [Concomitant]

REACTIONS (1)
  - POLYURIA [None]
